FAERS Safety Report 7494714-7 (Version None)
Quarter: 2011Q2

REPORT INFORMATION
  Report Type: 
  Country: None (occurrence: None)
  Receive Date: 20110520
  Receipt Date: 20110512
  Transmission Date: 20111010
  Serious: Yes (Hospitalization)
  Sender: FDA-Public Use
  Company Number: US-GENZYME-CLOF-1001078

PATIENT
  Sex: Male
  Weight: 114.8 kg

DRUGS (5)
  1. CALCIUM ACETATE [Concomitant]
     Indication: PRODUCT USED FOR UNKNOWN INDICATION
     Dosage: 667 MG, BID
     Route: 048
     Dates: start: 20100702
  2. COMPAZINE [Concomitant]
     Indication: PROPHYLAXIS OF NAUSEA AND VOMITING
     Dosage: 10 MG/DAY, PRN
     Dates: start: 20100628
  3. ALLOPURINOL [Concomitant]
     Indication: PRODUCT USED FOR UNKNOWN INDICATION
     Dosage: 300 MG, QD
     Route: 048
     Dates: start: 20100630
  4. CLOLAR [Suspect]
     Indication: MYELODYSPLASTIC SYNDROME
     Dosage: 25 MG, QDX5
     Route: 048
     Dates: start: 20100628, end: 20100702
  5. ACYCLOVIR [Concomitant]
     Indication: PROPHYLAXIS

REACTIONS (4)
  - CLOSTRIDIUM DIFFICILE COLITIS [None]
  - STAPHYLOCOCCAL BACTERAEMIA [None]
  - HAEMATURIA [None]
  - MYCOBACTERIUM AVIUM COMPLEX INFECTION [None]
